FAERS Safety Report 24620922 (Version 1)
Quarter: 2024Q4

REPORT INFORMATION
  Report Type: Spontaneous
  Country: US (occurrence: None)
  Receive Date: 20241114
  Receipt Date: 20241114
  Transmission Date: 20250114
  Serious: Yes (Hospitalization, Other)
  Sender: Public
  Company Number: None

PATIENT
  Age: 52 Year
  Sex: Female
  Weight: 90.72 kg

DRUGS (9)
  1. VANCOMYCIN [Suspect]
     Active Substance: VANCOMYCIN
     Dates: start: 20181204, end: 20200911
  2. HEPARIN [Suspect]
     Active Substance: HEPARIN SODIUM
  3. lanntice [Concomitant]
  4. advistatin [Concomitant]
  5. lisinpril [Concomitant]
  6. OMEPRAZOLE [Concomitant]
     Active Substance: OMEPRAZOLE
  7. dicyclomin [Concomitant]
  8. vitamin b + d [Concomitant]
  9. MAGNESIUM [Concomitant]
     Active Substance: MAGNESIUM

REACTIONS (2)
  - Infection [None]
  - Nonspecific reaction [None]

NARRATIVE: CASE EVENT DATE: 20181202
